FAERS Safety Report 20711535 (Version 1)
Quarter: 2022Q2

REPORT INFORMATION
  Report Type: Spontaneous
  Country: BR (occurrence: BR)
  Receive Date: 20220414
  Receipt Date: 20220414
  Transmission Date: 20220721
  Serious: Yes (Other)
  Sender: FDA-Public Use
  Company Number: BR-002147023-NVSC2022BR081505

PATIENT

DRUGS (1)
  1. RUXOLITINIB [Suspect]
     Active Substance: RUXOLITINIB
     Indication: Product used for unknown indication
     Dosage: UNK
     Route: 065

REACTIONS (1)
  - Cytomegalovirus infection [Unknown]
